FAERS Safety Report 9444185 (Version 1)
Quarter: 2013Q3

REPORT INFORMATION
  Report Type: Report from Study
  Country: DE (occurrence: DE)
  Receive Date: 20130807
  Receipt Date: 20130807
  Transmission Date: 20140515
  Serious: Yes (Other)
  Sender: FDA-Public Use
  Company Number: DE-ROCHE-1258205

PATIENT
  Age: 56 Year
  Sex: Male

DRUGS (4)
  1. AVASTIN [Suspect]
     Indication: NON-SMALL CELL LUNG CANCER
     Dosage: SIX CYCLES
     Route: 042
     Dates: start: 200707, end: 200712
  2. AVASTIN [Suspect]
     Dosage: MONOTHERAPY
     Route: 042
     Dates: start: 200801, end: 201206
  3. CISPLATIN [Concomitant]
     Indication: NON-SMALL CELL LUNG CANCER
     Dosage: SIX CYCLES, ON D1 AND D8 OF EACH CYCLE
     Route: 042
     Dates: start: 200707, end: 200712
  4. GEMCITABINE [Concomitant]
     Indication: NON-SMALL CELL LUNG CANCER
     Dosage: SIX CYCLES, ON D1 AND D8 OF EACH CYCLE
     Route: 042
     Dates: start: 200707, end: 200712

REACTIONS (2)
  - Pneumonia [Recovered/Resolved]
  - Blood creatinine increased [Unknown]
